FAERS Safety Report 7463415-3 (Version None)
Quarter: 2011Q2

REPORT INFORMATION
  Report Type: 
  Country: None (occurrence: None)
  Receive Date: 20110506
  Receipt Date: 20110428
  Transmission Date: 20111010
  Serious: Yes (Hospitalization)
  Sender: FDA-Public Use
  Company Number: B0693577A

PATIENT
  Sex: Male
  Weight: 80 kg

DRUGS (4)
  1. CEREDIST [Concomitant]
     Route: 048
  2. RIVOTRIL [Concomitant]
     Route: 048
  3. LAMICTAL [Suspect]
     Indication: EPILEPSY
     Dosage: 100MG PER DAY
     Route: 048
     Dates: start: 20101126, end: 20101222
  4. TEGRETOL [Concomitant]
     Indication: EPILEPSY
     Dosage: 50MG PER DAY
     Route: 048
     Dates: start: 20101126, end: 20101209

REACTIONS (2)
  - RASH [None]
  - GRANULOCYTE COUNT DECREASED [None]
